FAERS Safety Report 4941245-1 (Version None)
Quarter: 2006Q1

REPORT INFORMATION
  Report Type: 
  Country: None (occurrence: None)
  Receive Date: 20060310
  Receipt Date: 20060310
  Transmission Date: 20060701
  Serious: Yes (Hospitalization)
  Sender: FDA-Public Use
  Company Number: None

PATIENT
  Age: 74 Year
  Sex: Male
  Weight: 80 kg

DRUGS (7)
  1. INTEGRILIN [Suspect]
     Indication: ANGINA UNSTABLE
     Dosage: 75 MG/100 ML 13ML/HOUR IV
     Route: 042
     Dates: start: 20051130
  2. AMBIEN [Concomitant]
  3. PLAVIX [Concomitant]
  4. COLAR [Concomitant]
  5. ECOTRIN [Concomitant]
  6. NEXIUM [Concomitant]
  7. ZOCOR [Concomitant]

REACTIONS (3)
  - HAEMATOMA [None]
  - POST PROCEDURAL COMPLICATION [None]
  - VASCULAR PSEUDOANEURYSM [None]
